FAERS Safety Report 7521806-6 (Version None)
Quarter: 2011Q2

REPORT INFORMATION
  Report Type: 
  Country: None (occurrence: None)
  Receive Date: 20110603
  Receipt Date: 20071005
  Transmission Date: 20111010
  Serious: Yes (Death, Disabling)
  Sender: FDA-Public Use
  Company Number: US-BAYER-200713701BWH

PATIENT
  Age: 83 Year
  Sex: Male
  Weight: 66 kg

DRUGS (13)
  1. PANCURONIUM BROMIDE [Concomitant]
     Dosage: UNK
     Route: 042
     Dates: start: 20051005
  2. WARFARIN SODIUM [Concomitant]
     Route: 048
  3. DIGOXIN [Concomitant]
     Route: 048
  4. LIDOCAINE [Concomitant]
     Dosage: 100 MG, UNK
     Route: 042
     Dates: start: 20051005
  5. VERSED [Concomitant]
     Dosage: UNK
     Route: 042
     Dates: start: 20051005
  6. FLOMAX [Concomitant]
     Route: 048
  7. HEPARIN [Concomitant]
     Dosage: UNK
     Route: 042
     Dates: start: 20051005
  8. ALBUMIN (HUMAN) [Concomitant]
     Dosage: 100 ML, UNK
     Route: 042
     Dates: start: 20051005
  9. TRASYLOL [Suspect]
     Indication: CORONARY ARTERY BYPASS
     Dosage: 200 ML, UNK
     Route: 042
     Dates: start: 20051005, end: 20051005
  10. PLEGISOL [Concomitant]
     Dosage: 765 ML, UNK
     Route: 042
     Dates: start: 20051005
  11. DIOVAN [Concomitant]
     Route: 048
  12. PROTAMINE SULFATE [Concomitant]
     Dosage: 250 MG, UNK
     Route: 042
     Dates: start: 20051005
  13. TRASYLOL [Suspect]
     Indication: MITRAL VALVE REPLACEMENT

REACTIONS (3)
  - RENAL INJURY [None]
  - INJURY [None]
  - RENAL FAILURE [None]
